FAERS Safety Report 4877164-9 (Version None)
Quarter: 2005Q4

REPORT INFORMATION
  Report Type: 
  Country: None (occurrence: None)
  Receive Date: 20051206
  Receipt Date: 20050804
  Transmission Date: 20060501
  Serious: No
  Sender: FDA-Public Use
  Company Number: USA0508104601

PATIENT
  Age: 60 Year
  Sex: Male
  Weight: 109 kg

DRUGS (14)
  1. CYMBALTA [Suspect]
     Indication: MAJOR DEPRESSION
     Dosage: 60 MG/2 DAY
     Dates: start: 20040831
  2. WELLBUTRIN [Concomitant]
  3. FLONASE [Concomitant]
  4. ASPIRIN [Concomitant]
  5. POTASSIUM [Concomitant]
  6. AVODART [Concomitant]
  7. LORATADINE [Concomitant]
  8. TERAZOSIN [Concomitant]
  9. TOPROL-XL [Concomitant]
  10. LASIX [Concomitant]
  11. OMEPRAZOLE [Concomitant]
  12. SYNTHROID [Concomitant]
  13. ZETIA [Concomitant]
  14. NITROSTAT [Concomitant]

REACTIONS (3)
  - BREAST PAIN [None]
  - HYPERHIDROSIS [None]
  - TREMOR [None]
